FAERS Safety Report 5885264-X (Version None)
Quarter: 2008Q3

REPORT INFORMATION
  Report Type: 
  Country: None (occurrence: None)
  Receive Date: 20080916
  Receipt Date: 20080909
  Transmission Date: 20090109
  Serious: Yes (Other)
  Sender: FDA-Public Use
  Company Number: FR-PFIZER INC-2008061998

PATIENT
  Sex: Female
  Weight: 30 kg

DRUGS (3)
  1. GENOTONORM [Suspect]
     Indication: GROWTH RETARDATION
     Route: 058
     Dates: start: 20010126
  2. MAXOMAT [Concomitant]
     Route: 058
     Dates: start: 19980501, end: 20070126
  3. ESTRADIOL HEMIHYDRATE [Concomitant]
     Indication: HYPOGONADISM FEMALE

REACTIONS (1)
  - MYELODYSPLASTIC SYNDROME [None]
